FAERS Safety Report 17546499 (Version 3)
Quarter: 2021Q2

REPORT INFORMATION
  Report Type: Spontaneous
  Country: JP (occurrence: JP)
  Receive Date: 20200316
  Receipt Date: 20210519
  Transmission Date: 20210716
  Serious: Yes (Hospitalization, Other)
  Sender: FDA-Public Use
  Company Number: JP-BAXTER-BA201503662

PATIENT
  Age: 1 Year
  Sex: Male
  Weight: 11 kg

DRUGS (12)
  1. ADVATE [Suspect]
     Active Substance: ANTIHEMOPHILIC FACTOR, HUMAN RECOMBINANT
     Dosage: 500IU (INTERNATIONAL UNIT)3X A WEEK
     Route: 042
     Dates: start: 201407
  2. ADVATE [Suspect]
     Active Substance: ANTIHEMOPHILIC FACTOR, HUMAN RECOMBINANT
     Indication: FACTOR VIII DEFICIENCY
     Dosage: 2000IU (INTERNATIONAL UNIT)1X A DAY
     Route: 042
     Dates: start: 201503
  3. ADVATE [Suspect]
     Active Substance: ANTIHEMOPHILIC FACTOR, HUMAN RECOMBINANT
     Indication: IMMUNE TOLERANCE INDUCTION
  4. ADVATE [Suspect]
     Active Substance: ANTIHEMOPHILIC FACTOR, HUMAN RECOMBINANT
     Indication: IMMUNE TOLERANCE INDUCTION
  5. ADVATE [Suspect]
     Active Substance: ANTIHEMOPHILIC FACTOR, HUMAN RECOMBINANT
     Indication: FACTOR VIII DEFICIENCY
     Dosage: 30 INTERNATIONAL UNIT/KILOGRAM, 1/WEEK
     Route: 042
     Dates: start: 2014
  6. ADVATE [Suspect]
     Active Substance: ANTIHEMOPHILIC FACTOR, HUMAN RECOMBINANT
     Dosage: 500IU (INTERNATIONAL UNIT)3X A WEEK
     Route: 042
     Dates: start: 201407
  7. ADVATE [Suspect]
     Active Substance: ANTIHEMOPHILIC FACTOR, HUMAN RECOMBINANT
     Dosage: 500IU (INTERNATIONAL UNIT)3X A WEEK
     Route: 042
     Dates: start: 201407
  8. ADVATE [Suspect]
     Active Substance: ANTIHEMOPHILIC FACTOR, HUMAN RECOMBINANT
     Indication: IMMUNE TOLERANCE INDUCTION
  9. ADVATE [Suspect]
     Active Substance: ANTIHEMOPHILIC FACTOR, HUMAN RECOMBINANT
     Indication: FACTOR VIII DEFICIENCY
     Dosage: 30 INTERNATIONAL UNIT/KILOGRAM, 1/WEEK
     Route: 042
     Dates: start: 2014
  10. ADVATE [Suspect]
     Active Substance: ANTIHEMOPHILIC FACTOR, HUMAN RECOMBINANT
     Indication: FACTOR VIII DEFICIENCY
     Dosage: 30 INTERNATIONAL UNIT/KILOGRAM, 1/WEEK
     Route: 042
     Dates: start: 2014
  11. ADVATE [Suspect]
     Active Substance: ANTIHEMOPHILIC FACTOR, HUMAN RECOMBINANT
     Indication: FACTOR VIII DEFICIENCY
     Dosage: 2000IU (INTERNATIONAL UNIT)1X A DAY
     Route: 042
     Dates: start: 201503
  12. ADVATE [Suspect]
     Active Substance: ANTIHEMOPHILIC FACTOR, HUMAN RECOMBINANT
     Indication: FACTOR VIII DEFICIENCY
     Dosage: 2000IU (INTERNATIONAL UNIT)1X A DAY
     Route: 042
     Dates: start: 201503

REACTIONS (4)
  - Factor VIII inhibition [Recovering/Resolving]
  - Arterial haemorrhage [Recovering/Resolving]
  - Fall [Recovering/Resolving]
  - Off label use [Unknown]

NARRATIVE: CASE EVENT DATE: 201502
